FAERS Safety Report 14350131 (Version 1)
Quarter: 2018Q1

REPORT INFORMATION
  Report Type: Spontaneous
  Country: US (occurrence: US)
  Receive Date: 20180103
  Receipt Date: 20180103
  Transmission Date: 20180509
  Serious: Yes (Other)
  Sender: FDA-Public Use
  Company Number: None

PATIENT
  Age: 68 Year
  Sex: Female
  Weight: 56.7 kg

DRUGS (1)
  1. BENRALIZUMAB OR PLACEBO [Suspect]
     Active Substance: BENRALIZUMAB
     Indication: NASAL POLYPS
     Dosage: ?          OTHER FREQUENCY:Q-MONTH;?
     Route: 058
     Dates: start: 20171212, end: 20171212

REACTIONS (3)
  - Chest discomfort [None]
  - Asthma [None]
  - Cough [None]

NARRATIVE: CASE EVENT DATE: 20171212
